FAERS Safety Report 18321949 (Version 1)
Quarter: 2020Q3

REPORT INFORMATION
  Report Type: Spontaneous
  Country: DE (occurrence: DE)
  Receive Date: 20200929
  Receipt Date: 20200929
  Transmission Date: 20201103
  Serious: Yes (Life-Threatening, Hospitalization, Other)
  Sender: FDA-Public Use
  Company Number: DE-AUROBINDO-AUR-APL-2020-049634

PATIENT
  Age: 31 Year
  Sex: Female

DRUGS (2)
  1. QUETIAPINE. [Suspect]
     Active Substance: QUETIAPINE
     Indication: PRODUCT USED FOR UNKNOWN INDICATION
     Dosage: 14 GRAM, 1 TOTAL (EXTENDED?RELEASE)
     Route: 048
  2. QUETIAPINE. [Suspect]
     Active Substance: QUETIAPINE
     Dosage: 3 GRAM, 1 TOTAL (IMMEDIATE RELEASE)
     Route: 048

REACTIONS (4)
  - Intentional overdose [Recovering/Resolving]
  - Somnolence [Recovered/Resolved]
  - Toxicity to various agents [Recovering/Resolving]
  - Bezoar [Recovering/Resolving]
